FAERS Safety Report 8874656 (Version 1)
Quarter: 2012Q4

REPORT INFORMATION
  Report Type: 
  Country: US (occurrence: US)
  Receive Date: 20121023
  Receipt Date: 20121023
  Transmission Date: 20130627
  Serious: Yes (Hospitalization)
  Sender: FDA-Public Use
  Company Number: US-ROCHE-1144251

PATIENT
  Age: 57 Year
  Sex: Male

DRUGS (5)
  1. PEGASYS [Suspect]
     Indication: HEPATITIS C
     Route: 058
     Dates: start: 20120228, end: 20120621
  2. RIBASPHERE [Suspect]
     Indication: HEPATITIS C
     Dosage: in divided doses
     Route: 048
     Dates: start: 20120228
  3. INCIVEK [Suspect]
     Indication: HEPATITIS C
     Route: 065
     Dates: start: 20120228, end: 20120504
  4. XANAX [Concomitant]
     Indication: ANXIETY
     Dosage: 0.5 mg - 10 mg as needed.
     Route: 065
  5. PAXIL [Concomitant]
     Indication: DEPRESSION
     Route: 065

REACTIONS (10)
  - Rash [Unknown]
  - Urticaria [Unknown]
  - Pruritus [Unknown]
  - Pallor [Unknown]
  - Face oedema [Unknown]
  - Oedema peripheral [Unknown]
  - Insomnia [Unknown]
  - Otitis media [Unknown]
  - Tremor [Not Recovered/Not Resolved]
  - Nausea [Unknown]
